FAERS Safety Report 14480200 (Version 7)
Quarter: 2018Q3

REPORT INFORMATION
  Report Type: Report from Study
  Country: DE (occurrence: DE)
  Receive Date: 20180202
  Receipt Date: 20180907
  Transmission Date: 20181010
  Serious: Yes (Hospitalization, Other)
  Sender: FDA-Public Use
  Company Number: DE-PFIZER INC-2018040406

PATIENT
  Age: 65 Year
  Sex: Female

DRUGS (10)
  1. GRANISETRON [Concomitant]
     Active Substance: GRANISETRON
     Indication: PROPHYLAXIS
     Dosage: 7.5 MG, DAILY AS NEEDED
     Dates: start: 20170920
  2. TRAMADOL. [Concomitant]
     Active Substance: TRAMADOL
     Indication: NEOPLASM
     Dosage: UNK
  3. GEMCITABINE HYDROCHLORIDE. [Suspect]
     Active Substance: GEMCITABINE HYDROCHLORIDE
     Dosage: UNK
  4. NIVOLUMAB [Suspect]
     Active Substance: NIVOLUMAB
     Indication: NON-SMALL CELL LUNG CANCER
     Dosage: 3 MG/KG, CYCLIC EVERY 2 WEEK
     Route: 042
     Dates: start: 20161104, end: 20170907
  5. XARELTO [Concomitant]
     Active Substance: RIVAROXABAN
     Indication: PROPHYLAXIS
     Dosage: 15 MG, UNK
     Dates: start: 20170918
  6. MCP [Concomitant]
     Active Substance: METOCLOPRAMIDE HYDROCHLORIDE
     Indication: PROPHYLAXIS
     Dosage: 10 MG, AS NEEDED
     Dates: start: 20170515
  7. CEFUROXIM [Concomitant]
     Active Substance: CEFUROXIME
     Dosage: UNK
     Dates: start: 20171018, end: 201710
  8. XARELTO [Concomitant]
     Active Substance: RIVAROXABAN
     Dosage: 20 MG, UNK
  9. NOVAMINSULFON [Concomitant]
     Active Substance: METAMIZOLE
     Indication: NEOPLASM
     Dosage: UNK, AS NEEDED
  10. OLANZAPIN [Concomitant]
     Active Substance: OLANZAPINE
     Dosage: 10 MG, UNK

REACTIONS (13)
  - Pelvic venous thrombosis [Not Recovered/Not Resolved]
  - Diarrhoea [Recovered/Resolved]
  - Dyspnoea exertional [Not Recovered/Not Resolved]
  - General physical health deterioration [Not Recovered/Not Resolved]
  - Cystitis [Recovered/Resolved]
  - Nausea [Not Recovered/Not Resolved]
  - Depression [Not Recovered/Not Resolved]
  - Cough [Unknown]
  - Polyneuropathy [Not Recovered/Not Resolved]
  - Affective disorder [Not Recovered/Not Resolved]
  - Neoplasm progression [Not Recovered/Not Resolved]
  - Thrombocytopenia [Recovered/Resolved]
  - Bladder disorder [Unknown]

NARRATIVE: CASE EVENT DATE: 20170310
